FAERS Safety Report 26161645 (Version 1)
Quarter: 2025Q4

REPORT INFORMATION
  Report Type: Spontaneous
  Country: TW (occurrence: TW)
  Receive Date: 20251216
  Receipt Date: 20251216
  Transmission Date: 20260118
  Serious: Yes (Death, Other)
  Sender: AMGEN
  Company Number: TW-AMGEN-TWNSP2025243807

PATIENT

DRUGS (1)
  1. EVOLOCUMAB [Suspect]
     Active Substance: EVOLOCUMAB
     Indication: Dyslipidaemia
     Dosage: UNK
     Route: 065

REACTIONS (3)
  - Death [Fatal]
  - Cardiovascular disorder [Unknown]
  - Renal disorder [Unknown]
